FAERS Safety Report 13527426 (Version 1)
Quarter: 2017Q2

REPORT INFORMATION
  Report Type: Spontaneous
  Country: US (occurrence: US)
  Receive Date: 20170509
  Receipt Date: 20170509
  Transmission Date: 20170830
  Serious: Yes (Hospitalization)
  Sender: FDA-Public Use
  Company Number: US-PFIZER INC-2017196962

PATIENT
  Age: 41 Year
  Sex: Female

DRUGS (1)
  1. LYRICA [Suspect]
     Active Substance: PREGABALIN
     Indication: FIBROMYALGIA
     Dosage: 100 MG, 3X/DAY
     Route: 048
     Dates: start: 2015

REACTIONS (11)
  - Platelet count increased [Unknown]
  - Lymphocyte count increased [Unknown]
  - Malnutrition [Unknown]
  - Blood glucose increased [Unknown]
  - Malaise [Unknown]
  - Stress [Unknown]
  - Dehydration [Unknown]
  - Drug dose omission [Unknown]
  - Pneumonia [Unknown]
  - Food poisoning [Unknown]
  - Eosinophil count increased [Unknown]
